FAERS Safety Report 4476516-9 (Version None)
Quarter: 2004Q4

REPORT INFORMATION
  Report Type: 
  Country: None (occurrence: None)
  Receive Date: 20041013
  Receipt Date: 20040923
  Transmission Date: 20050328
  Serious: Yes (Death, Other)
  Sender: FDA-Public Use
  Company Number: USA040979162

PATIENT
  Age: 15 Year
  Sex: Male
  Weight: 96 kg

DRUGS (4)
  1. ZYPREXA [Suspect]
  2. METRONIDAZOLE [Concomitant]
  3. TOPIRMATE [Concomitant]
  4. CLONAZEPAM [Concomitant]

REACTIONS (1)
  - COMA [None]
